FAERS Safety Report 6091838-6 (Version None)
Quarter: 2009Q1

REPORT INFORMATION
  Report Type: 
  Country: None (occurrence: None)
  Receive Date: 20090225
  Receipt Date: 20080730
  Transmission Date: 20090719
  Serious: No
  Sender: FDA-Public Use
  Company Number: A0740288A

PATIENT
  Age: 44 Year
  Sex: Male

DRUGS (7)
  1. VALTREX [Suspect]
     Indication: DRUG USE FOR UNKNOWN INDICATION
     Dosage: 1G PER DAY
     Route: 048
     Dates: end: 20080701
  2. DILTIAZEM HCL [Suspect]
     Indication: BLOOD PRESSURE
     Dosage: 360MG PER DAY
     Dates: end: 20080701
  3. EVOXAC [Suspect]
     Indication: DRY MOUTH
     Dosage: 30MG TWICE PER DAY
     Route: 048
     Dates: start: 20071101, end: 20080701
  4. NEXIUM [Suspect]
     Indication: ILL-DEFINED DISORDER
     Dosage: 1CAP TWICE PER DAY
     Route: 048
     Dates: end: 20080701
  5. SPIRONOLACTONE [Suspect]
     Indication: BLOOD PRESSURE
     Dosage: 37.5MG PER DAY
     Route: 048
     Dates: start: 20071001, end: 20080701
  6. AMBIEN [Concomitant]
  7. TYLENOL [Concomitant]

REACTIONS (10)
  - BACK PAIN [None]
  - BURNING SENSATION [None]
  - HYPOAESTHESIA [None]
  - OEDEMA PERIPHERAL [None]
  - OESOPHAGEAL PAIN [None]
  - ORAL DISCOMFORT [None]
  - ORAL MUCOSAL ERYTHEMA [None]
  - PAIN IN EXTREMITY [None]
  - PARAESTHESIA [None]
  - STOMATITIS [None]
